FAERS Safety Report 7481639-6 (Version None)
Quarter: 2011Q2

REPORT INFORMATION
  Report Type: 
  Country: None (occurrence: None)
  Receive Date: 20110516
  Receipt Date: 20110510
  Transmission Date: 20111010
  Serious: Yes (Death)
  Sender: FDA-Public Use
  Company Number: JP-ROCHE-776502

PATIENT
  Age: 69 Year
  Sex: Female

DRUGS (2)
  1. ACTEMRA [Suspect]
     Indication: RHEUMATOID ARTHRITIS
     Route: 041
     Dates: start: 20110203
  2. ACTEMRA [Suspect]
     Dosage: 2ND ADMINISTRATION OF TOCILIZUMAB.
     Route: 041
     Dates: start: 20110303

REACTIONS (1)
  - INTERSTITIAL LUNG DISEASE [None]
